FAERS Safety Report 14477292 (Version 1)
Quarter: 2018Q1

REPORT INFORMATION
  Report Type: Report from Study
  Country: US (occurrence: US)
  Receive Date: 20180201
  Receipt Date: 20180201
  Transmission Date: 20180509
  Serious: No
  Sender: FDA-Public Use
  Company Number: US-EXELIXIS-CABO-17010630

PATIENT
  Sex: Male

DRUGS (8)
  1. COMETRIQ [Suspect]
     Active Substance: CABOZANTINIB S-MALATE
     Indication: THYROID CANCER
     Dosage: 140 MG, QD
     Route: 048
     Dates: start: 20160729, end: 2016
  2. CALCITRIOL. [Concomitant]
     Active Substance: CALCITRIOL
  3. VITAMIN D [Concomitant]
     Active Substance: CHOLECALCIFEROL
  4. TUMS [Concomitant]
     Active Substance: CALCIUM CARBONATE
  5. XGEVA [Concomitant]
     Active Substance: DENOSUMAB
  6. LISINOPRIL. [Concomitant]
     Active Substance: LISINOPRIL
  7. COMETRIQ [Suspect]
     Active Substance: CABOZANTINIB S-MALATE
     Dosage: 80 MG, QD
     Route: 048
     Dates: start: 201612
  8. PROMETHAZINE [Concomitant]
     Active Substance: PROMETHAZINE\PROMETHAZINE HYDROCHLORIDE

REACTIONS (2)
  - Malaise [Unknown]
  - Vomiting [Unknown]
